FAERS Safety Report 12251042 (Version 2)
Quarter: 2016Q3

REPORT INFORMATION
  Report Type: Report from Study
  Country: JP (occurrence: JP)
  Receive Date: 20160409
  Receipt Date: 20160722
  Transmission Date: 20161109
  Serious: Yes (Other)
  Sender: FDA-Public Use
  Company Number: JP-BRISTOL-MYERS SQUIBB COMPANY-BMS-2016-026411

PATIENT
  Age: 76 Year

DRUGS (2)
  1. SUNVEPRA [Suspect]
     Active Substance: ASUNAPREVIR
     Indication: HEPATITIS C
     Dosage: UNK
     Route: 048
     Dates: start: 20150305, end: 20150820
  2. DACLATASVIR DIHYDROCHLORIDE [Suspect]
     Active Substance: DACLATASVIR DIHYDROCHLORIDE
     Indication: HEPATITIS C
     Dosage: UNK
     Route: 048
     Dates: start: 20150305, end: 20150820

REACTIONS (5)
  - Lipase increased [Unknown]
  - Blood potassium increased [Unknown]
  - Palpitations [Unknown]
  - Blood bilirubin increased [Unknown]
  - Cardiac failure chronic [Unknown]
